FAERS Safety Report 13576016 (Version 1)
Quarter: 2017Q2

REPORT INFORMATION
  Report Type: Spontaneous
  Country: US (occurrence: US)
  Receive Date: 20170523
  Receipt Date: 20170523
  Transmission Date: 20170830
  Serious: No
  Sender: FDA-Public Use
  Company Number: None

PATIENT
  Age: 68 Year
  Sex: Female

DRUGS (17)
  1. VANCOMYCN [Concomitant]
  2. GABAPENTIN. [Concomitant]
     Active Substance: GABAPENTIN
  3. OCALIVA [Suspect]
     Active Substance: OBETICHOLIC ACID
     Indication: HEPATIC CIRRHOSIS
     Dosage: 5MG ONCE DAILY BY MOUTH
     Route: 048
     Dates: start: 201704
  4. INCRUSE ELPT [Concomitant]
  5. SERTRALINE [Concomitant]
     Active Substance: SERTRALINE HYDROCHLORIDE
  6. ALENDRONATE [Concomitant]
     Active Substance: ALENDRONATE SODIUM
  7. PRAVASTATIN. [Concomitant]
     Active Substance: PRAVASTATIN
  8. URSODIOL. [Concomitant]
     Active Substance: URSODIOL
  9. MORPHINE [Concomitant]
     Active Substance: MORPHINE
  10. SPORONOLACT [Concomitant]
  11. AMLODIPINE [Concomitant]
     Active Substance: AMLODIPINE BESYLATE
  12. FUROSEMIDE. [Concomitant]
     Active Substance: FUROSEMIDE
  13. HYDROMET [Concomitant]
     Active Substance: HOMATROPINE METHYLBROMIDE\HYDROCODONE BITARTRATE
  14. OMEPRAZOLE. [Concomitant]
     Active Substance: OMEPRAZOLE
  15. ONDANSETRON [Concomitant]
     Active Substance: ONDANSETRON
  16. ALPRAZOLAM. [Concomitant]
     Active Substance: ALPRAZOLAM
  17. CIPROFLOXACN [Concomitant]
     Active Substance: CIPROFLOXACIN

REACTIONS (1)
  - Drug ineffective [None]

NARRATIVE: CASE EVENT DATE: 201704
